FAERS Safety Report 11458200 (Version 1)
Quarter: 2015Q3

REPORT INFORMATION
  Report Type: Spontaneous
  Country: US (occurrence: None)
  Receive Date: 20150903
  Receipt Date: 20150903
  Transmission Date: 20151125
  Serious: No
  Sender: FDA-Public Use
  Company Number: None

PATIENT
  Sex: Female

DRUGS (1)
  1. CERDELGA [Suspect]
     Active Substance: ELIGLUSTAT
     Indication: LIPIDOSIS
     Route: 048
     Dates: start: 20150407

REACTIONS (3)
  - Headache [None]
  - Cough [None]
  - Bone pain [None]
